FAERS Safety Report 5060330-X (Version None)
Quarter: 2006Q3

REPORT INFORMATION
  Report Type: 
  Country: None (occurrence: None)
  Receive Date: 20060718
  Receipt Date: 20060629
  Transmission Date: 20061208
  Serious: Yes (Death)
  Sender: FDA-Public Use
  Company Number: US200605001170

PATIENT
  Age: 72 Year
  Sex: Male

DRUGS (1)
  1. GEMZAR [Suspect]
     Indication: NON-SMALL CELL LUNG CANCER STAGE IV

REACTIONS (2)
  - CARDIOPULMONARY FAILURE [None]
  - INJECTION SITE IRRITATION [None]
